FAERS Safety Report 13261650 (Version 2)
Quarter: 2017Q1

REPORT INFORMATION
  Report Type: Report from Study
  Country: CZ (occurrence: CZ)
  Receive Date: 20170222
  Receipt Date: 20170227
  Transmission Date: 20170428
  Serious: No
  Sender: FDA-Public Use
  Company Number: CZ-JNJFOC-20170218377

PATIENT
  Age: 66 Year
  Sex: Female

DRUGS (1)
  1. STELARA [Suspect]
     Active Substance: USTEKINUMAB
     Indication: PSORIASIS
     Route: 058
     Dates: start: 20150303, end: 20161114

REACTIONS (1)
  - Invasive papillary breast carcinoma [Unknown]

NARRATIVE: CASE EVENT DATE: 20161207
